FAERS Safety Report 9808728 (Version 1)
Quarter: 2014Q1

REPORT INFORMATION
  Report Type: Spontaneous
  Country: US (occurrence: US)
  Receive Date: 20140110
  Receipt Date: 20140110
  Transmission Date: 20141002
  Serious: Yes (Death)
  Sender: FDA-Public Use
  Company Number: US-ASTRAZENECA-2014SE01246

PATIENT
  Age: 86 Year
  Sex: Female

DRUGS (7)
  1. QUETIAPINE [Suspect]
     Route: 048
  2. ACETAMINOPHEN [Suspect]
     Route: 065
  3. BUPROPION [Suspect]
     Route: 065
  4. TOPIRAMATE [Suspect]
     Route: 065
  5. DORZOLAMIDE/TIMOLOL [Suspect]
     Route: 065
  6. SIMVASTATIN [Suspect]
     Route: 065
  7. AMLODIPINE [Suspect]
     Route: 065

REACTIONS (1)
  - Toxicity to various agents [Fatal]
